FAERS Safety Report 4489251-8 (Version None)
Quarter: 2004Q4

REPORT INFORMATION
  Report Type: 
  Country: None (occurrence: None)
  Receive Date: 20041026
  Receipt Date: 20041011
  Transmission Date: 20050328
  Serious: Yes (Death, Life-Threatening)
  Sender: FDA-Public Use
  Company Number: 6011042

PATIENT
  Age: 71 Year
  Sex: Female

DRUGS (6)
  1. BISOPROLOL FUMARATE [Suspect]
     Indication: TACHYCARDIA
     Dosage: 1,00 DOSAGE
     Route: 048
     Dates: start: 20040814, end: 20040909
  2. LEPTICUR            (TROPATEPINE  HYDROCHLORIDE) [Concomitant]
     Indication: PSYCHOTIC DISORDER
     Dosage: 2 DOSAGE FORMS
     Route: 048
     Dates: end: 20040901
  3. CITALOPRAM HYDROBROMIDE [Suspect]
     Indication: PSYCHOTIC DISORDER
     Dosage: 1,00 DOSAGE FORMS (1 DOSAGE FORMS, 1 IN 1 D)
     Route: 048
     Dates: end: 20040901
  4. FLEET PHOSPHO SODA [Suspect]
     Indication: COLONOSCOPY
     Dosage: 1 DOSAGE FORMS
     Route: 048
     Dates: start: 20040907, end: 20040908
  5. XAGRID (ANAGRELIDE HYDROCHLORIDE) [Suspect]
     Indication: PSYCHOTIC DISORDER
     Dosage: 12 DOSAGE FORMS
     Route: 048
     Dates: start: 20040623, end: 20040908
  6. LOXAPINE SUCCINATE [Suspect]
     Indication: PSYCHOTIC DISORDER
     Dosage: 20 DOSAGE FORMS
     Route: 048
     Dates: start: 20040623, end: 20040908

REACTIONS (4)
  - HYPERPHOSPHATAEMIA [None]
  - MYOCARDIAL INFARCTION [None]
  - MYOCARDIAL RUPTURE [None]
  - PLATELET COUNT INCREASED [None]
